FAERS Safety Report 11947956 (Version 1)
Quarter: 2016Q1

REPORT INFORMATION
  Report Type: Spontaneous
  Country: US (occurrence: US)
  Receive Date: 20160125
  Receipt Date: 20160125
  Transmission Date: 20160526
  Serious: No
  Sender: FDA-Public Use
  Company Number: US-TAKEDA-2016TUS001051

PATIENT

DRUGS (1)
  1. COLCRYS [Suspect]
     Active Substance: COLCHICINE
     Indication: FAMILIAL MEDITERRANEAN FEVER
     Dosage: 0.6 MG, UNK
     Route: 065

REACTIONS (1)
  - Drug ineffective [Unknown]
